FAERS Safety Report 16947715 (Version 9)
Quarter: 2021Q3

REPORT INFORMATION
  Report Type: Spontaneous
  Country: US (occurrence: US)
  Receive Date: 20191022
  Receipt Date: 20210820
  Transmission Date: 20211014
  Serious: Yes (Hospitalization)
  Sender: FDA-Public Use
  Company Number: US-PFIZER INC-2019455231

PATIENT
  Age: 59 Year
  Sex: Female

DRUGS (3)
  1. ALEVE [Concomitant]
     Active Substance: NAPROXEN SODIUM
  2. CELEBREX [Concomitant]
     Active Substance: CELECOXIB
  3. XELJANZ XR [Suspect]
     Active Substance: TOFACITINIB CITRATE
     Indication: RHEUMATOID ARTHRITIS
     Dosage: 11 MG, 1X/DAY

REACTIONS (9)
  - Memory impairment [Unknown]
  - Fibromyalgia [Unknown]
  - Insomnia [Unknown]
  - Asthenia [Unknown]
  - Functional gastrointestinal disorder [Recovered/Resolved]
  - Fall [Unknown]
  - Pain [Unknown]
  - Rotator cuff syndrome [Unknown]
  - Hypoacusis [Unknown]
